FAERS Safety Report 13257689 (Version 1)
Quarter: 2017Q1

REPORT INFORMATION
  Report Type: Spontaneous
  Country: FR (occurrence: FR)
  Receive Date: 20170221
  Receipt Date: 20170221
  Transmission Date: 20170428
  Serious: Yes (Hospitalization, Other)
  Sender: FDA-Public Use
  Company Number: FR-PFIZER INC-2017067044

PATIENT
  Age: 3 Year
  Sex: Male
  Weight: 15.5 kg

DRUGS (4)
  1. PRIMALAN [Suspect]
     Active Substance: MEQUITAZINE
     Indication: LARYNGITIS
     Dosage: UNK
     Route: 048
     Dates: start: 20170112, end: 20170118
  2. ZITHROMAX [Suspect]
     Active Substance: AZITHROMYCIN DIHYDRATE
     Indication: LARYNGITIS
     Dosage: UNK
     Route: 048
     Dates: start: 20170112, end: 20170118
  3. TUSSIDANE [Suspect]
     Active Substance: DEXTROMETHORPHAN HYDROBROMIDE
     Indication: COUGH
     Dosage: UNK
     Route: 048
     Dates: start: 20170112, end: 20170118
  4. ADVIL [Concomitant]
     Active Substance: IBUPROFEN
     Indication: PYREXIA
     Dosage: UNK
     Route: 048
     Dates: start: 20170112, end: 20170118

REACTIONS (3)
  - Petit mal epilepsy [Recovering/Resolving]
  - Agitation [Recovering/Resolving]
  - Mydriasis [Recovering/Resolving]

NARRATIVE: CASE EVENT DATE: 20170112
